FAERS Safety Report 6451090-6 (Version None)
Quarter: 2009Q4

REPORT INFORMATION
  Report Type: 
  Country: None (occurrence: None)
  Receive Date: 20091123
  Receipt Date: 20091111
  Transmission Date: 20100525
  Serious: Yes (Hospitalization)
  Sender: FDA-Public Use
  Company Number: US-PFIZER INC-2009295842

PATIENT
  Sex: Female
  Weight: 66 kg

DRUGS (12)
  1. BLINDED *IBUPROFEN [Suspect]
     Indication: OSTEOARTHRITIS
     Dosage: UNK
     Route: 048
     Dates: start: 20080519, end: 20090923
  2. BLINDED *NAPROXEN [Suspect]
     Indication: OSTEOARTHRITIS
     Dosage: UNK
     Route: 048
     Dates: start: 20080519, end: 20090923
  3. BLINDED *NO SUBJECT DRUG [Suspect]
     Indication: OSTEOARTHRITIS
     Dosage: UNK
     Route: 048
     Dates: start: 20080519, end: 20090923
  4. BLINDED *PLACEBO [Suspect]
     Indication: OSTEOARTHRITIS
     Dosage: UNK
     Route: 048
     Dates: start: 20080519, end: 20090923
  5. BLINDED CELECOXIB [Suspect]
     Indication: OSTEOARTHRITIS
     Dosage: UNK
     Route: 048
     Dates: start: 20080519, end: 20090923
  6. BLINDED IBUPROFEN [Suspect]
     Dosage: UNK
     Route: 048
     Dates: start: 20080519, end: 20090923
  7. BLINDED NAPROXEN [Suspect]
     Dosage: UNK
     Route: 048
     Dates: start: 20080519, end: 20090923
  8. NEXIUM [Concomitant]
     Dosage: 20 MG, 1X/DAY
     Route: 048
     Dates: start: 20080519, end: 20090923
  9. SYNTHROID [Concomitant]
     Indication: HYPOTHYROIDISM
     Dosage: 0.1 MG, 1X/DAY
     Route: 048
     Dates: start: 19950809
  10. LISINOPRIL AND HYDROCHLOROTHIAZIDE [Concomitant]
     Indication: HYPERTENSION
     Dosage: 10/12.5 MG
     Route: 048
     Dates: start: 20020509
  11. FOSAMAX [Concomitant]
     Dosage: UNK
     Route: 048
     Dates: start: 20000612
  12. MULTIVITAMINS AND IRON [Concomitant]
     Indication: ANAEMIA
     Dosage: UNK
     Route: 048
     Dates: start: 20080717

REACTIONS (3)
  - ANAEMIA [None]
  - ARRHYTHMIA [None]
  - GASTROINTESTINAL HAEMORRHAGE [None]
